FAERS Safety Report 16450259 (Version 1)
Quarter: 2019Q2

REPORT INFORMATION
  Report Type: Spontaneous
  Country: US (occurrence: US)
  Receive Date: 20190619
  Receipt Date: 20190619
  Transmission Date: 20190711
  Serious: No
  Sender: FDA-Public Use
  Company Number: US-AUROBINDO-AUR-APL-2019-014278

PATIENT

DRUGS (1)
  1. CLOZAPINE TABLET [Suspect]
     Active Substance: CLOZAPINE
     Indication: PARKINSON^S DISEASE
     Dosage: 25 MILLIGRAM HALF TABLET TWICE DAILY
     Route: 048

REACTIONS (3)
  - Dyskinesia [Unknown]
  - Tremor [Unknown]
  - Gait disturbance [Unknown]
